FAERS Safety Report 8186863-5 (Version None)
Quarter: 2012Q1

REPORT INFORMATION
  Report Type: 
  Country: None (occurrence: None)
  Receive Date: 20120306
  Receipt Date: 20120222
  Transmission Date: 20120608
  Serious: Yes (Hospitalization)
  Sender: FDA-Public Use
  Company Number: GB-CELGENEUS-167-21880-12022474

PATIENT
  Age: 65 Year
  Sex: Female

DRUGS (3)
  1. REVLIMID [Suspect]
     Route: 048
  2. ZOMETA [Suspect]
     Route: 048
  3. CHEMOTHERAPEUTICS NOS [Concomitant]

REACTIONS (2)
  - RENAL FAILURE ACUTE [None]
  - ASCITES [None]
